FAERS Safety Report 19574696 (Version 1)
Quarter: 2021Q3

REPORT INFORMATION
  Report Type: Other
  Country: US (occurrence: US)
  Receive Date: 20210719
  Receipt Date: 20210719
  Transmission Date: 20211014
  Serious: Yes (Death)
  Sender: FDA-Public Use
  Company Number: US-KNIGHT THERAPEUTICS (USA) INC.-2113961

PATIENT
  Age: 51 Year
  Sex: Male

DRUGS (7)
  1. SULFADIAZINE. [Concomitant]
     Active Substance: SULFADIAZINE
  2. GLYBURIDE. [Concomitant]
     Active Substance: GLYBURIDE
  3. FLUCONAZOLE. [Concomitant]
     Active Substance: FLUCONAZOLE
  4. FLUCYTOSINE. [Concomitant]
     Active Substance: FLUCYTOSINE
  5. METFORMIN [Concomitant]
     Active Substance: METFORMIN HYDROCHLORIDE
  6. AZITHROMYCIN ANHYDROUS. [Concomitant]
     Active Substance: AZITHROMYCIN ANHYDROUS
  7. IMPAVIDO [Suspect]
     Active Substance: MILTEFOSINE

REACTIONS (2)
  - Off label use [None]
  - Drug ineffective for unapproved indication [Fatal]
